FAERS Safety Report 15606153 (Version 1)
Quarter: 2018Q4

REPORT INFORMATION
  Report Type: Spontaneous
  Country: US (occurrence: US)
  Receive Date: 20181112
  Receipt Date: 20181112
  Transmission Date: 20190205
  Serious: No
  Sender: FDA-Public Use
  Company Number: US-SHIRE-US201840915

PATIENT
  Age: 85 Year
  Sex: Female
  Weight: 63.49 kg

DRUGS (2)
  1. XIIDRA [Suspect]
     Active Substance: LIFITEGRAST
     Indication: DRY EYE
     Dosage: 1 GTT, 2X/DAY:BID
     Route: 047
     Dates: start: 20181012
  2. SYSTANE (HYPROMELLOSE 2910 (4000 MPA.S)) [Concomitant]
     Active Substance: HYPROMELLOSE 2910 (4000 MPA.S)
     Indication: DRY EYE
     Dosage: 1 GTT, 2X/DAY:BID 5 % SOLUTION IN EACH EYE, PUT 2 DROPS IN 1 EYE

REACTIONS (6)
  - Product administration error [Unknown]
  - Product use complaint [Unknown]
  - Off label use [Unknown]
  - Vision blurred [Unknown]
  - Eye disorder [Unknown]
  - Instillation site reaction [Unknown]

NARRATIVE: CASE EVENT DATE: 201810
